FAERS Safety Report 4676950-8 (Version None)
Quarter: 2005Q2

REPORT INFORMATION
  Report Type: 
  Country: None (occurrence: None)
  Receive Date: 20050526
  Receipt Date: 20050513
  Transmission Date: 20051028
  Serious: Yes (Hospitalization, Other)
  Sender: FDA-Public Use
  Company Number: 2004079254

PATIENT
  Age: 28 Year
  Sex: Female

DRUGS (31)
  1. GEODON [Suspect]
     Indication: AFFECTIVE DISORDER
     Dosage: 240 MG (120 MG, 2 IN 1 D), ORAL
     Route: 048
     Dates: start: 20010430, end: 20031012
  2. FLUCONAZOLE [Suspect]
     Indication: CANDIDIASIS
     Dosage: 100 MG (1 IN 1 D), ORAL
     Route: 048
     Dates: start: 20031001, end: 20031013
  3. CLARITIN [Suspect]
     Indication: ILL-DEFINED DISORDER
     Dosage: 10 MG, 1 IN 1 D, ORAL
     Route: 048
     Dates: start: 20010101
  4. LITHOBID [Suspect]
     Indication: ILL-DEFINED DISORDER
     Dosage: 1200 MG (600 MG, 2 IN 1 D), ORAL
     Route: 048
     Dates: start: 20010101
  5. LEXAPRO [Suspect]
     Indication: ILL-DEFINED DISORDER
     Dosage: 15 MG, 1 IN 1 D, ORAL
     Route: 048
     Dates: start: 20010101
  6. TOPIRAMATE [Suspect]
     Indication: ILL-DEFINED DISORDER
     Dosage: 100 MG, 1 IN 1 D, ORAL
     Route: 048
     Dates: start: 20010101
  7. PREDNISONE [Concomitant]
  8. VANCOMYCIN [Concomitant]
  9. TYLENOL [Concomitant]
  10. HEPARIN [Concomitant]
  11. EXCEDRIN (MIGRAINE) [Concomitant]
  12. ASPIRIN [Concomitant]
  13. PROTONIX [Concomitant]
  14. PREVACID [Concomitant]
  15. KLONOPIN [Concomitant]
  16. ZYPREXA [Concomitant]
  17. KEPPRA [Concomitant]
  18. CIPROFLOXACIN [Concomitant]
  19. TRAZODONE HCL [Concomitant]
  20. METOPROLOL TARTRATE [Concomitant]
  21. SYNTHROID [Concomitant]
  22. DIFLUCAN [Concomitant]
  23. LACTAID (TILACTASE) [Concomitant]
  24. PROZAC [Concomitant]
  25. FERROUS SULFATE TAB [Concomitant]
  26. CLONAZEPAM [Concomitant]
  27. SIMETHICONE (SIMETHICONE) [Concomitant]
  28. NALTREXONE HCL [Concomitant]
  29. ABILIFY [Concomitant]
  30. PLAQUENIL [Concomitant]
  31. FIORICET [Concomitant]

REACTIONS (63)
  - ABDOMINAL TENDERNESS [None]
  - ACTIVATED PARTIAL THROMBOPLASTIN TIME PROLONGED [None]
  - AGGRESSION [None]
  - AGITATION [None]
  - AMMONIA ABNORMAL [None]
  - ANAEMIA [None]
  - ANXIETY [None]
  - BACTERIAL INFECTION [None]
  - BLOOD CHLORIDE DECREASED [None]
  - BLOOD CREATINE PHOSPHOKINASE INCREASED [None]
  - BLOOD CREATINE PHOSPHOKINASE MB INCREASED [None]
  - BLOOD CREATININE INCREASED [None]
  - BLOOD MAGNESIUM DECREASED [None]
  - BLOOD SODIUM DECREASED [None]
  - BLOOD UREA INCREASED [None]
  - CANDIDIASIS [None]
  - CARDIOMEGALY [None]
  - CENTRAL LINE INFECTION [None]
  - CHOLELITHIASIS [None]
  - CONFUSIONAL STATE [None]
  - CONTUSION [None]
  - DECREASED APPETITE [None]
  - DELIRIUM [None]
  - DIALYSIS [None]
  - DISORIENTATION [None]
  - ECCHYMOSIS [None]
  - EJECTION FRACTION DECREASED [None]
  - ELECTROCARDIOGRAM ST SEGMENT ABNORMAL [None]
  - ELECTROCARDIOGRAM T WAVE ABNORMAL [None]
  - ELECTROCARDIOGRAM T WAVE BIPHASIC [None]
  - ELECTROLYTE IMBALANCE [None]
  - EYE INJURY [None]
  - GALLOP RHYTHM PRESENT [None]
  - HEADACHE [None]
  - HEPARIN-INDUCED THROMBOCYTOPENIA [None]
  - HYPOKALAEMIA [None]
  - INCOHERENT [None]
  - LUPUS NEPHRITIS [None]
  - MENTAL STATUS CHANGES [None]
  - MIGRAINE [None]
  - MUCOSAL DRYNESS [None]
  - PAIN [None]
  - PLATELET COUNT DECREASED [None]
  - PROTEINURIA [None]
  - PROTHROMBIN TIME PROLONGED [None]
  - PYREXIA [None]
  - RENAL FAILURE [None]
  - SEPSIS [None]
  - SKIN STRIAE [None]
  - SOMNOLENCE [None]
  - THERAPEUTIC AGENT TOXICITY [None]
  - TOOTH DISORDER [None]
  - TORSADE DE POINTES [None]
  - TREATMENT NONCOMPLIANCE [None]
  - TREMOR [None]
  - TRICUSPID VALVE INCOMPETENCE [None]
  - URINARY CASTS [None]
  - URINARY TRACT INFECTION [None]
  - URINE KETONE BODY PRESENT [None]
  - URINE LEUKOCYTE ESTERASE POSITIVE [None]
  - VENTRICULAR EXTRASYSTOLES [None]
  - VOMITING [None]
  - WHITE BLOOD CELLS URINE [None]
